FAERS Safety Report 8008421-5 (Version None)
Quarter: 2011Q4

REPORT INFORMATION
  Report Type: 
  Country: None (occurrence: None)
  Receive Date: 20111227
  Receipt Date: 20111227
  Transmission Date: 20120403
  Serious: Yes (Hospitalization)
  Sender: FDA-Public Use
  Company Number: US-ABBOTT-11P-163-0884046-00

PATIENT
  Sex: Male
  Weight: 145.28 kg

DRUGS (10)
  1. ANDROGEL [Suspect]
     Indication: ARRHYTHMIA
  2. ANDROGEL [Suspect]
     Indication: ARRHYTHMIA
  3. CARDIZEM [Concomitant]
     Indication: CARDIAC DISORDER
  4. PEPCID [Concomitant]
     Indication: PRODUCT USED FOR UNKNOWN INDICATION
  5. ANDROGEL [Suspect]
     Indication: BLOOD TESTOSTERONE DECREASED
     Dates: start: 20110801
  6. ANDROGEL [Suspect]
     Indication: BLOOD TESTOSTERONE DECREASED
     Dates: start: 20100101, end: 20110801
  7. LASIX [Concomitant]
     Indication: CARDIAC DISORDER
  8. VASOTEC [Concomitant]
     Indication: CARDIAC DISORDER
  9. DIGOXIN [Concomitant]
     Indication: CARDIAC DISORDER
  10. PLAVIX [Concomitant]
     Indication: PRODUCT USED FOR UNKNOWN INDICATION

REACTIONS (7)
  - POSTOPERATIVE WOUND INFECTION [None]
  - STAPHYLOCOCCAL INFECTION [None]
  - OFF LABEL USE [None]
  - LOCALISED INFECTION [None]
  - URINARY TRACT INFECTION [None]
  - SEPSIS [None]
  - THERAPEUTIC RESPONSE UNEXPECTED [None]
